FAERS Safety Report 16181242 (Version 5)
Quarter: 2019Q3

REPORT INFORMATION
  Report Type: Report from Study
  Country: CO (occurrence: CO)
  Receive Date: 20190410
  Receipt Date: 20190710
  Transmission Date: 20191004
  Serious: Yes (Hospitalization, Other)
  Sender: FDA-Public Use
  Company Number: CO-SA-2018SA039098

PATIENT
  Age: 31 Year
  Sex: Female

DRUGS (2)
  1. ACICLOVIR [Concomitant]
     Active Substance: ACYCLOVIR
     Indication: PROPHYLAXIS
     Dosage: 200 MG,Q12H
     Route: 048
  2. ALEMTUZUMAB [Suspect]
     Active Substance: ALEMTUZUMAB
     Indication: MULTIPLE SCLEROSIS
     Dosage: 12 MG,QD
     Route: 041
     Dates: start: 20180205, end: 20180209

REACTIONS (47)
  - Dysuria [Unknown]
  - Burning sensation [Recovered/Resolved]
  - Face oedema [Recovered/Resolved]
  - Red blood cells urine [Recovered/Resolved]
  - Rash generalised [Recovered/Resolved]
  - Haematuria [Recovered/Resolved]
  - Neurogenic bladder [Unknown]
  - Multiple sclerosis relapse [Unknown]
  - Mean cell volume decreased [Not Recovered/Not Resolved]
  - Irritability [Not Recovered/Not Resolved]
  - Pain [Recovered/Resolved]
  - Pain [Not Recovered/Not Resolved]
  - Burn infection [Unknown]
  - Monocyte percentage increased [Recovered/Resolved]
  - Neutrophil percentage increased [Recovered/Resolved]
  - Mean cell haemoglobin concentration decreased [Not Recovered/Not Resolved]
  - White blood cell count decreased [Recovered/Resolved]
  - Urinary casts [Recovered/Resolved]
  - Nitrite urine present [Recovered/Resolved]
  - Leukocyturia [Recovered/Resolved]
  - Bacteriuria [Recovered/Resolved]
  - Thermal burn [Recovered/Resolved]
  - Anal sphincter atony [Not Recovered/Not Resolved]
  - Platelet morphology abnormal [Unknown]
  - Urinary tract infection pseudomonal [Unknown]
  - Polyuria [Unknown]
  - Vaginal discharge [Unknown]
  - Bladder spasm [Unknown]
  - Incontinence [Unknown]
  - Blood creatinine decreased [Not Recovered/Not Resolved]
  - pH urine increased [Recovered/Resolved]
  - Crystalluria [Recovered/Resolved]
  - Back pain [Unknown]
  - Pain [Unknown]
  - Crystal urine present [Recovered/Resolved]
  - Haematocrit decreased [Recovered/Resolved]
  - Platelet count decreased [Recovered/Resolved]
  - Haemoglobin decreased [Recovered/Resolved]
  - Monocyte count decreased [Recovered/Resolved]
  - Diarrhoea [Not Recovered/Not Resolved]
  - Crystalluria [Recovered/Resolved]
  - Lymphocyte percentage decreased [Recovered/Resolved]
  - Crystal urine present [Recovered/Resolved]
  - Protein urine present [Recovered/Resolved]
  - Pain [Unknown]
  - Mean cell haemoglobin decreased [Not Recovered/Not Resolved]
  - Lymphocyte count decreased [Recovered/Resolved]

NARRATIVE: CASE EVENT DATE: 20180206
